FAERS Safety Report 14683216 (Version 4)
Quarter: 2018Q2

REPORT INFORMATION
  Report Type: Spontaneous
  Country: US (occurrence: US)
  Receive Date: 20180327
  Receipt Date: 20180617
  Transmission Date: 20180711
  Serious: Yes (Death, Hospitalization)
  Sender: FDA-Public Use
  Company Number: PHEH2018US010489

PATIENT
  Age: 58 Year
  Sex: Male

DRUGS (4)
  1. VOTRIENT [Suspect]
     Active Substance: PAZOPANIB HYDROCHLORIDE
     Indication: GASTROINTESTINAL CARCINOMA
     Dosage: 800 MG, QD
     Route: 048
     Dates: start: 20180405, end: 20180523
  2. IFEX [Concomitant]
     Active Substance: IFOSFAMIDE
     Indication: PRODUCT USED FOR UNKNOWN INDICATION
     Route: 065
  3. VOTRIENT [Suspect]
     Active Substance: PAZOPANIB HYDROCHLORIDE
     Indication: MALIGNANT CONNECTIVE TISSUE NEOPLASM
     Dosage: 800 MG, QD
     Route: 048
     Dates: start: 20171006
  4. ADRIAMYCIN [Concomitant]
     Active Substance: DOXORUBICIN HYDROCHLORIDE
     Indication: PRODUCT USED FOR UNKNOWN INDICATION
     Route: 065

REACTIONS (8)
  - Blood albumin decreased [Unknown]
  - Staphylococcal infection [Unknown]
  - Product use in unapproved indication [Unknown]
  - Oedema peripheral [Unknown]
  - Malignant connective tissue neoplasm [Unknown]
  - Malignant neoplasm progression [Unknown]
  - Skin infection [Unknown]
  - Death [Fatal]

NARRATIVE: CASE EVENT DATE: 20180215
